FAERS Safety Report 8917900 (Version 1)
Quarter: 2012Q4

REPORT INFORMATION
  Report Type: 
  Country: US (occurrence: US)
  Receive Date: 20121120
  Receipt Date: 20121120
  Transmission Date: 20130627
  Serious: No
  Sender: FDA-Public Use
  Company Number: US-ASTRAZENECA-2012SE15469

PATIENT
  Sex: Female
  Weight: 68 kg

DRUGS (2)
  1. NEXIUM [Suspect]
     Indication: DYSPEPSIA
     Route: 048
  2. SUDAFED [Concomitant]

REACTIONS (2)
  - Dizziness [Unknown]
  - Off label use [Unknown]
